FAERS Safety Report 17604892 (Version 3)
Quarter: 2020Q3

REPORT INFORMATION
  Report Type: Spontaneous
  Country: US (occurrence: US)
  Receive Date: 20200331
  Receipt Date: 20200926
  Transmission Date: 20201102
  Serious: Yes (Other)
  Sender: FDA-Public Use
  Company Number: US-AMGEN-USASP2020048198

PATIENT
  Age: 6 Year
  Sex: Male

DRUGS (8)
  1. BLINATUMOMAB [Suspect]
     Active Substance: BLINATUMOMAB
     Indication: B PRECURSOR TYPE ACUTE LEUKAEMIA
     Dosage: UNK
     Route: 065
  2. BEVACIZUMAB. [Suspect]
     Active Substance: BEVACIZUMAB
     Indication: LEUKOENCEPHALOPATHY
     Dosage: 2 DOSES
     Route: 065
  3. HYDROCORTISONE. [Concomitant]
     Active Substance: HYDROCORTISONE
     Route: 037
  4. GABAPENTIN. [Concomitant]
     Active Substance: GABAPENTIN
  5. METHOTREXATE. [Concomitant]
     Active Substance: METHOTREXATE
     Dosage: UNK
     Route: 037
  6. CYTARABINE. [Concomitant]
     Active Substance: CYTARABINE
     Route: 037
  7. TOPIRAMATE. [Concomitant]
     Active Substance: TOPIRAMATE
  8. TISAGENLECLEUCEL?T [Concomitant]
     Active Substance: TISAGENLECLEUCEL

REACTIONS (4)
  - Off label use [Unknown]
  - Central nervous system leukaemia [Recovering/Resolving]
  - Cytokine release syndrome [Unknown]
  - Leukoencephalopathy [Unknown]
